FAERS Safety Report 9715206 (Version 1)
Quarter: 2013Q4

REPORT INFORMATION
  Report Type: Report from Study
  Country: US (occurrence: US)
  Receive Date: 20131126
  Receipt Date: 20131126
  Transmission Date: 20140711
  Serious: Yes (Other)
  Sender: FDA-Public Use
  Company Number: US-ABBVIE-13P-163-1170921-00

PATIENT
  Age: 35 Year
  Sex: Female
  Weight: 49.94 kg

DRUGS (1)
  1. LUPRON DEPOT [Suspect]
     Indication: UTERINE LEIOMYOMA
     Route: 030
     Dates: start: 201307

REACTIONS (2)
  - Ovarian cyst [Recovered/Resolved]
  - Vaginal haemorrhage [Not Recovered/Not Resolved]
